FAERS Safety Report 7376487-1 (Version None)
Quarter: 2011Q1

REPORT INFORMATION
  Report Type: 
  Country: None (occurrence: None)
  Receive Date: 20110325
  Receipt Date: 20110314
  Transmission Date: 20110831
  Serious: Yes (Hospitalization)
  Sender: FDA-Public Use
  Company Number: PHHO2010FR17391

PATIENT
  Sex: Female

DRUGS (6)
  1. ZELITREX [Concomitant]
  2. BACTRIM [Concomitant]
  3. VINCRISTINE [Suspect]
  4. STI571/CGP57148B [Suspect]
     Dosage: 400 MG, UNK
     Route: 048
     Dates: start: 20101105, end: 20101108
  5. FLUCONAZOLE [Concomitant]
  6. STI571/CGP57148B [Suspect]
     Indication: ACUTE LYMPHOCYTIC LEUKAEMIA
     Dosage: 800 MG, UNK
     Route: 048
     Dates: start: 20101022, end: 20101103

REACTIONS (5)
  - HYPONATRAEMIA [None]
  - HALLUCINATION, VISUAL [None]
  - INAPPROPRIATE ANTIDIURETIC HORMONE SECRETION [None]
  - DRUG INTOLERANCE [None]
  - ALTERED STATE OF CONSCIOUSNESS [None]
